FAERS Safety Report 9465265 (Version 1)
Quarter: 2013Q3

REPORT INFORMATION
  Report Type: Spontaneous
  Country: FI (occurrence: FI)
  Receive Date: 20130819
  Receipt Date: 20130819
  Transmission Date: 20140515
  Serious: Yes (Other)
  Sender: FDA-Public Use
  Company Number: PHHY2013FI087731

PATIENT
  Age: 44 Year
  Sex: Female

DRUGS (3)
  1. ZOMETA [Suspect]
     Dosage: UNK UKN, UNK
     Dates: start: 2004, end: 2011
  2. XGEVA [Suspect]
     Indication: BREAST CANCER
     Dosage: 120 MG, EVERY 4 WEEKS
     Dates: start: 201111
  3. XGEVA [Suspect]
     Indication: METASTASES TO SPINE

REACTIONS (2)
  - Femoral neck fracture [Unknown]
  - Groin pain [Unknown]
